FAERS Safety Report 8777482 (Version 1)
Quarter: 2012Q4

REPORT INFORMATION
  Report Type: 
  Country: US (occurrence: US)
  Receive Date: 20120911
  Receipt Date: 20120911
  Transmission Date: 20130627
  Serious: No
  Sender: FDA-Public Use
  Company Number: US-ASTRAZENECA-2012SE64929

PATIENT
  Age: 26723 Day
  Sex: Female
  Weight: 52.2 kg

DRUGS (2)
  1. NEXIUM [Suspect]
     Route: 048
     Dates: start: 2010
  2. LUMAGEN [Concomitant]

REACTIONS (4)
  - Headache [Unknown]
  - Abdominal discomfort [Unknown]
  - Flatulence [Unknown]
  - Off label use [Unknown]
